FAERS Safety Report 9938760 (Version 1)
Quarter: 2014Q1

REPORT INFORMATION
  Report Type: Spontaneous
  Country: US (occurrence: US)
  Receive Date: 20140303
  Receipt Date: 20140303
  Transmission Date: 20141002
  Serious: No
  Sender: FDA-Public Use
  Company Number: US-PFIZER INC-2014057423

PATIENT
  Age: 48 Year
  Sex: Male

DRUGS (3)
  1. LIPITOR [Suspect]
     Dosage: UNK
  2. RAMIPRIL [Suspect]
     Dosage: UNK
  3. CARVEDILOL [Suspect]
     Dosage: UNK

REACTIONS (1)
  - Muscle spasms [Unknown]
